FAERS Safety Report 4600875-7 (Version None)
Quarter: 2005Q1

REPORT INFORMATION
  Report Type: 
  Country: None (occurrence: None)
  Receive Date: 20050207
  Receipt Date: 20041213
  Transmission Date: 20050727
  Serious: No
  Sender: FDA-Public Use
  Company Number: 2004USFACT00172

PATIENT
  Age: 46 Year
  Sex: Male
  Weight: 117.9 kg

DRUGS (1)
  1. FACTIVE [Suspect]
     Indication: RESPIRATORY TRACT INFECTION BACTERIAL
     Dosage: QD, ORAL
     Route: 048
     Dates: start: 20041202, end: 20041206

REACTIONS (1)
  - MUSCLE STRAIN [None]
